FAERS Safety Report 4701072-7 (Version None)
Quarter: 2005Q2

REPORT INFORMATION
  Report Type: 
  Country: None (occurrence: None)
  Receive Date: 20050624
  Receipt Date: 20041029
  Transmission Date: 20051028
  Serious: Yes (Hospitalization)
  Sender: FDA-Public Use
  Company Number: 207202

PATIENT
  Age: 53 Year
  Sex: Male

DRUGS (2)
  1. AVONEX [Suspect]
     Indication: MULTIPLE SCLEROSIS
     Dosage: 30 UG;QW;IM
     Route: 030
     Dates: start: 20010101
  2. AVONEX [Suspect]
     Indication: MULTIPLE SCLEROSIS
     Dosage: 30 UG;QW; IM
     Route: 030

REACTIONS (3)
  - IMPAIRED HEALING [None]
  - OSTEOCHONDROSIS [None]
  - OSTEONECROSIS [None]
